FAERS Safety Report 21337659 (Version 1)
Quarter: 2022Q3

REPORT INFORMATION
  Report Type: Spontaneous
  Country: None (occurrence: FR)
  Receive Date: 20220915
  Receipt Date: 20220915
  Transmission Date: 20221027
  Serious: Yes (Hospitalization, Other)
  Sender: FDA-Public Use
  Company Number: FR-AFSSAPS-AVLL20220051

PATIENT
  Age: 33 Year
  Sex: Female

DRUGS (1)
  1. NITROUS OXIDE [Suspect]
     Active Substance: NITROUS OXIDE
     Route: 055

REACTIONS (4)
  - Loss of consciousness [Unknown]
  - Cognitive disorder [Unknown]
  - Paraesthesia [Unknown]
  - Gait disturbance [Unknown]
